FAERS Safety Report 8260164-9 (Version None)
Quarter: 2012Q2

REPORT INFORMATION
  Report Type: 
  Country: None (occurrence: None)
  Receive Date: 20120404
  Receipt Date: 20120327
  Transmission Date: 20120825
  Serious: Yes (Life-Threatening)
  Sender: FDA-Public Use
  Company Number: ES-FRI-1000029488

PATIENT
  Age: 66 Year
  Sex: Female

DRUGS (5)
  1. OLMESARTAN MEDOXOMIL [Concomitant]
     Indication: HYPERTENSION
     Dosage: 40 MG
     Route: 048
     Dates: start: 20100101, end: 20111124
  2. ASPIRIN [Concomitant]
     Indication: ATRIAL FIBRILLATION
     Dosage: 100 MG
     Route: 048
     Dates: start: 20070101, end: 20111124
  3. NEBIVOLOL [Suspect]
     Indication: HYPERTENSION
     Dosage: 5 MG
     Route: 048
     Dates: start: 20111102, end: 20111124
  4. PITAVASTATIN [Suspect]
     Indication: DYSLIPIDAEMIA
     Dosage: 1 MG
     Route: 048
     Dates: start: 20111102, end: 20111124
  5. CHIROMAS [Concomitant]
     Indication: IMMUNISATION
     Dates: start: 20111031, end: 20111031

REACTIONS (5)
  - RHABDOMYOLYSIS [None]
  - BLOOD CREATININE INCREASED [None]
  - RESPIRATORY FAILURE [None]
  - BRONCHOSPASM [None]
  - DYSPNOEA [None]
